FAERS Safety Report 12787958 (Version 1)
Quarter: 2016Q3

REPORT INFORMATION
  Report Type: Spontaneous
  Country: US (occurrence: US)
  Receive Date: 20160928
  Receipt Date: 20160928
  Transmission Date: 20161109
  Serious: Yes (Other)
  Sender: FDA-Public Use
  Company Number: None

PATIENT
  Age: 58 Year
  Sex: Male
  Weight: 97.52 kg

DRUGS (2)
  1. SUMATRIPTAN INJECTION USP, AUTOINJECTOR SYSTEM, 6 MG/0.5 ML, FOR SUBCUTANEOUS INJECTION ONLY . [Suspect]
     Active Substance: SUMATRIPTAN
     Indication: MIGRAINE
     Dosage: 6 MG PER 0.5 ML 1 INJECTION UP TO 2X PER DAY AS NEEDED INJECTION INTO THE SKIN.
     Route: 058
     Dates: start: 20160906, end: 20160919
  2. MULTIVITAMIN [Concomitant]
     Active Substance: VITAMINS

REACTIONS (7)
  - Product substitution issue [None]
  - Injection site pain [None]
  - Device ineffective [None]
  - Incorrect dose administered by device [None]
  - Device difficult to use [None]
  - Drug ineffective [None]
  - Drug effect delayed [None]

NARRATIVE: CASE EVENT DATE: 20160910
